FAERS Safety Report 26111981 (Version 1)
Quarter: 2025Q4

REPORT INFORMATION
  Report Type: Spontaneous
  Country: US (occurrence: US)
  Receive Date: 20251202
  Receipt Date: 20251202
  Transmission Date: 20260118
  Serious: Yes (Hospitalization, Other)
  Sender: CHEPLAPHARM
  Company Number: US-CHEPLA-2025013504

PATIENT
  Age: 50 Year
  Sex: Male

DRUGS (7)
  1. QUETIAPINE [Suspect]
     Active Substance: QUETIAPINE
     Indication: Schizophrenia
  2. QUETIAPINE [Suspect]
     Active Substance: QUETIAPINE
     Indication: Bipolar disorder
  3. CLONAZEPAM [Suspect]
     Active Substance: CLONAZEPAM
     Indication: Bipolar disorder
  4. CLONAZEPAM [Suspect]
     Active Substance: CLONAZEPAM
     Indication: Schizophrenia
  5. TRAZODONE [Suspect]
     Active Substance: TRAZODONE HYDROCHLORIDE
     Indication: Bipolar disorder
  6. TRAZODONE [Suspect]
     Active Substance: TRAZODONE HYDROCHLORIDE
     Indication: Schizophrenia
  7. CANNABIS SATIVA SUBSP. INDICA TOP [Suspect]
     Active Substance: CANNABIS SATIVA SUBSP. INDICA TOP

REACTIONS (15)
  - Cardiac arrest [Unknown]
  - Hypokalaemia [Unknown]
  - Cytotoxic oedema [Unknown]
  - Hypoxic-ischaemic encephalopathy [Unknown]
  - Ventricular tachycardia [Unknown]
  - Atrial fibrillation [Unknown]
  - Acute coronary syndrome [Unknown]
  - Overdose [Unknown]
  - Acidosis [Unknown]
  - Mydriasis [Unknown]
  - Nervous system disorder [Unknown]
  - Central pain syndrome [Unknown]
  - Dyskinesia [Unknown]
  - Ischaemia [Unknown]
  - Off label use [Unknown]
